FAERS Safety Report 4665982-1 (Version None)
Quarter: 2005Q2

REPORT INFORMATION
  Report Type: 
  Country: None (occurrence: None)
  Receive Date: 20050517
  Receipt Date: 20050517
  Transmission Date: 20051028
  Serious: Yes (Hospitalization)
  Sender: FDA-Public Use
  Company Number: None

PATIENT
  Age: 27 Year
  Sex: Male
  Weight: 104.5 kg

DRUGS (1)
  1. VICODIN [Suspect]
     Indication: TIBIA FRACTURE
     Dosage: 1 TO 2 TABS    EVERY 4 TO 6 H    ORAL
     Route: 048
     Dates: start: 20050501, end: 20050509

REACTIONS (1)
  - STEVENS-JOHNSON SYNDROME [None]
